FAERS Safety Report 10787783 (Version 2)
Quarter: 2015Q1

REPORT INFORMATION
  Report Type: Spontaneous
  Country: GB (occurrence: None)
  Receive Date: 20150210
  Receipt Date: 20150220
  Transmission Date: 20150721
  Serious: Yes (Death, Life-Threatening, Hospitalization, Disabling, Other)
  Sender: FDA-Public Use
  Company Number: 2015CVI00002

PATIENT
  Age: 53 Year
  Sex: Female

DRUGS (5)
  1. NORTRIPTYLINE [Suspect]
     Active Substance: NORTRIPTYLINE
     Indication: PAIN
     Route: 048
     Dates: start: 2002
  2. CITALOPRAM [Suspect]
     Active Substance: CITALOPRAM HYDROBROMIDE
     Dates: start: 2002
  3. OMEPRAZOLE. [Concomitant]
     Active Substance: OMEPRAZOLE
  4. CODEINE [Concomitant]
     Active Substance: CODEINE
  5. RANITIDINE HCL [Suspect]
     Active Substance: RANITIDINE HYDROCHLORIDE

REACTIONS (6)
  - Brain injury [None]
  - Pneumonia aspiration [None]
  - Ventricular arrhythmia [None]
  - Long QT syndrome [None]
  - Hypertension [None]
  - Cardiac arrest [None]

NARRATIVE: CASE EVENT DATE: 2001
